FAERS Safety Report 18428798 (Version 1)
Quarter: 2020Q4

REPORT INFORMATION
  Report Type: Spontaneous
  Country: FR (occurrence: FR)
  Receive Date: 20201026
  Receipt Date: 20201026
  Transmission Date: 20210114
  Serious: Yes (Other)
  Sender: FDA-Public Use
  Company Number: FR-MYLANLABS-2020M1089726

PATIENT
  Age: 10 Year
  Sex: Male
  Weight: 27 kg

DRUGS (1)
  1. NALBUPHINE [Suspect]
     Active Substance: NALBUPHINE
     Indication: SINUSITIS
     Dosage: 5 MILLIGRAM, TOTAL
     Route: 042
     Dates: start: 20200906, end: 20200906

REACTIONS (2)
  - Nightmare [Not Recovered/Not Resolved]
  - Hallucination [Recovered/Resolved]

NARRATIVE: CASE EVENT DATE: 20200906
